FAERS Safety Report 4531890-X (Version None)
Quarter: 2004Q4

REPORT INFORMATION
  Report Type: 
  Country: None (occurrence: None)
  Receive Date: 20041220
  Receipt Date: 20040813
  Transmission Date: 20050328
  Serious: No
  Sender: FDA-Public Use
  Company Number: US-GLAXOSMITHKLINE-A0522128A

PATIENT
  Sex: Male

DRUGS (1)
  1. TRIZIVIR [Suspect]
     Indication: HIV INFECTION
     Route: 048

REACTIONS (5)
  - DRUG INEFFECTIVE [None]
  - DRUG RESISTANCE [None]
  - PHARMACEUTICAL PRODUCT COMPLAINT [None]
  - THYROXINE FREE DECREASED [None]
  - VIRAL LOAD INCREASED [None]
